FAERS Safety Report 9677859 (Version 2)
Quarter: 2013Q4

REPORT INFORMATION
  Report Type: Other
  Country: US (occurrence: US)
  Receive Date: 20131108
  Receipt Date: 20131125
  Transmission Date: 20140711
  Serious: Yes (Death)
  Sender: FDA-Public Use
  Company Number: US-SHIRE-ALL1-2013-07751

PATIENT
  Age: 74 Year
  Sex: Male

DRUGS (1)
  1. FOSRENOL [Suspect]
     Indication: PRODUCT USED FOR UNKNOWN INDICATION
     Dosage: 500 MG (FOUR TABS WITH MEALS, TWO TABS WITH SNACKS [16 DAILY]), UNKNOWN
     Route: 048

REACTIONS (2)
  - Death [Fatal]
  - Prescribed overdose [Unknown]
